FAERS Safety Report 6207038-2 (Version None)
Quarter: 2009Q2

REPORT INFORMATION
  Report Type: 
  Country: None (occurrence: None)
  Receive Date: 20090528
  Receipt Date: 20090518
  Transmission Date: 20091009
  Serious: Yes (Other)
  Sender: FDA-Public Use
  Company Number: JP-BAYER-200911583BYL

PATIENT
  Age: 53 Year
  Sex: Male
  Weight: 51 kg

DRUGS (14)
  1. FLUDARA [Suspect]
     Indication: MYELODYSPLASTIC SYNDROME
     Dosage: TOTAL DAILY DOSE: 40 MG  UNIT DOSE: 50 MG
     Route: 042
     Dates: start: 20090115, end: 20090120
  2. BUSULFAN [Concomitant]
     Indication: MYELODYSPLASTIC SYNDROME
     Dosage: AS USED: 3.2 MG/KG
     Route: 042
     Dates: start: 20090117, end: 20090120
  3. PROGRAF [Concomitant]
     Indication: PROPHYLAXIS AGAINST GRAFT VERSUS HOST DISEASE
     Dosage: CONTROL OF BLOOD CONCENTRATION
     Route: 042
     Dates: start: 20090122
  4. PROGRAF [Concomitant]
     Dosage: CONTROL OF BLOOD CONCENTRATION
     Route: 048
     Dates: start: 20090122
  5. METHOTREXATE [Concomitant]
     Indication: PROPHYLAXIS AGAINST GRAFT VERSUS HOST DISEASE
     Dosage: AS USED: 11 MG
     Route: 042
     Dates: start: 20090126, end: 20090203
  6. METHOTREXATE [Concomitant]
     Dosage: AS USED: 15 MG
     Route: 042
     Dates: start: 20090125, end: 20090125
  7. LEUCOVORIN CALCIUM [Concomitant]
     Indication: PROPHYLAXIS AGAINST GRAFT VERSUS HOST DISEASE
     Dosage: AS USED: 36 MG
     Route: 042
     Dates: start: 20090125, end: 20090125
  8. VALPROATE SODIUM [Concomitant]
     Indication: CONVULSION PROPHYLAXIS
     Dosage: AS USED: 600 MG
     Route: 048
     Dates: start: 20090115, end: 20090122
  9. CIPROXAN [Concomitant]
     Indication: INFECTION PROPHYLAXIS
     Dosage: AS USED: 600 MG
     Route: 042
     Dates: start: 20090115, end: 20090116
  10. ZOVIRAX [Concomitant]
     Indication: INFECTION PROPHYLAXIS
     Dosage: AS USED: 1000 MG
     Route: 048
     Dates: start: 20090115
  11. DIFLUCAN [Concomitant]
     Indication: INFECTION PROPHYLAXIS
     Dosage: AS USED: 200 MG
     Route: 048
     Dates: start: 20090115
  12. URSO 250 [Concomitant]
     Indication: HEPATIC FUNCTION ABNORMAL
     Dosage: AS USED: 600 MG
     Route: 048
     Dates: start: 20090115
  13. CONCENTRATED RED CELLS [Concomitant]
     Indication: PACKED RED BLOOD CELL TRANSFUSION
     Route: 042
     Dates: start: 20090119, end: 20090219
  14. PLATELETS [Concomitant]
     Indication: PLATELET TRANSFUSION
     Route: 042
     Dates: start: 20090121, end: 20090220

REACTIONS (3)
  - ACUTE GRAFT VERSUS HOST DISEASE [None]
  - DIARRHOEA [None]
  - PYREXIA [None]
